FAERS Safety Report 6236828-5 (Version None)
Quarter: 2009Q2

REPORT INFORMATION
  Report Type: 
  Country: None (occurrence: None)
  Receive Date: 20090619
  Receipt Date: 20090608
  Transmission Date: 20091009
  Serious: Yes (Other)
  Sender: FDA-Public Use
  Company Number: NL-JNJFOC-20090605871

PATIENT
  Sex: Male

DRUGS (4)
  1. ZALDIAR [Suspect]
     Indication: MUSCLE SPASMS
     Route: 048
  2. METFORMIN HCL [Concomitant]
     Route: 065
  3. INSULIN [Concomitant]
     Route: 065
  4. SERETIDE [Concomitant]
     Route: 065

REACTIONS (1)
  - ASTHMA [None]
